FAERS Safety Report 10010168 (Version 2)
Quarter: 2014Q1

REPORT INFORMATION
  Report Type: Spontaneous
  Country: US (occurrence: US)
  Receive Date: 20140312
  Receipt Date: 20140312
  Transmission Date: 20141002
  Serious: No
  Sender: FDA-Public Use
  Company Number: US-INCYTE CORPORATION-2013IN001427

PATIENT
  Sex: Female

DRUGS (10)
  1. JAKAFI [Suspect]
     Indication: POLYCYTHAEMIA VERA
     Dosage: 20 MG, BID
     Route: 048
     Dates: start: 201304
  2. JAKAFI [Suspect]
     Indication: MYELOFIBROSIS
     Dosage: 10 MG IN AM, 20 MG IN PM
     Route: 048
  3. METOPROLOL [Concomitant]
  4. LOSARTAN [Concomitant]
  5. HYDROXYCHLOROQUINE [Concomitant]
  6. ASPIRIN [Concomitant]
     Dosage: 81 MG
  7. ALLOPURINOL [Concomitant]
  8. OMEPRAZOLE [Concomitant]
  9. AMBIEN [Concomitant]
  10. SERTRALINE [Concomitant]

REACTIONS (10)
  - Diarrhoea [Unknown]
  - Platelet count increased [Unknown]
  - Rhinorrhoea [Unknown]
  - Oral pain [Unknown]
  - Sensation of heaviness [Unknown]
  - Insomnia [Unknown]
  - Nail bed disorder [Unknown]
  - Appetite disorder [Unknown]
  - Alopecia [Unknown]
  - Weight increased [Unknown]
